FAERS Safety Report 23377220 (Version 2)
Quarter: 2024Q1

REPORT INFORMATION
  Report Type: Spontaneous
  Country: US (occurrence: US)
  Receive Date: 20240108
  Receipt Date: 20240115
  Transmission Date: 20240410
  Serious: Yes (Hospitalization)
  Sender: FDA-Public Use
  Company Number: US-CTI BIOPHARMA-2023US04393

PATIENT

DRUGS (2)
  1. VONJO [Suspect]
     Active Substance: PACRITINIB
     Indication: Acute myeloid leukaemia
     Dosage: 200 MG, BID
     Route: 048
     Dates: start: 20231208
  2. VENCLEXTA [Concomitant]
     Active Substance: VENETOCLAX

REACTIONS (2)
  - Transfusion [Unknown]
  - Peripheral swelling [Unknown]
